FAERS Safety Report 16858174 (Version 3)
Quarter: 2021Q2

REPORT INFORMATION
  Report Type: Spontaneous
  Country: US (occurrence: US)
  Receive Date: 20190926
  Receipt Date: 20210610
  Transmission Date: 20210716
  Serious: Yes (Hospitalization, Other)
  Sender: FDA-Public Use
  Company Number: US-GILEAD-2019-0429386

PATIENT
  Age: 19 Year
  Sex: Female
  Weight: 58.96 kg

DRUGS (41)
  1. PREZISTA [Concomitant]
     Active Substance: DARUNAVIR ETHANOLATE
  2. DIOVAN [Concomitant]
     Active Substance: VALSARTAN
  3. GEMFIBROZIL. [Concomitant]
     Active Substance: GEMFIBROZIL
  4. PRINIVIL [Concomitant]
     Active Substance: LISINOPRIL
  5. KALETRA [Concomitant]
     Active Substance: LOPINAVIR\RITONAVIR
  6. LEXIVA [Concomitant]
     Active Substance: FOSAMPRENAVIR CALCIUM
  7. TRIZIVIR [Concomitant]
     Active Substance: ABACAVIR SULFATE\LAMIVUDINE\ZIDOVUDINE
  8. CEFDINIR. [Concomitant]
     Active Substance: CEFDINIR
  9. METOPROLOL. [Concomitant]
     Active Substance: METOPROLOL
  10. VANCENASE [Concomitant]
     Active Substance: BECLOMETHASONE DIPROPIONATE
  11. ZITHROMAX [Concomitant]
     Active Substance: AZITHROMYCIN DIHYDRATE
  12. EPIVIR [Concomitant]
     Active Substance: LAMIVUDINE
  13. NORVIR [Concomitant]
     Active Substance: RITONAVIR
  14. LISINOPRIL. [Concomitant]
     Active Substance: LISINOPRIL
  15. PREDNISONE. [Concomitant]
     Active Substance: PREDNISONE
  16. SULFAMETHOXAZOLE;TRIMETHOPRIM [Concomitant]
     Active Substance: SULFAMETHOXAZOLE\TRIMETHOPRIM
  17. VALTREX [Concomitant]
     Active Substance: VALACYCLOVIR HYDROCHLORIDE
  18. TRUVADA [Suspect]
     Active Substance: EMTRICITABINE\TENOFOVIR DISOPROXIL FUMARATE
     Indication: HIV INFECTION
     Dosage: UNK
     Route: 048
     Dates: start: 2004, end: 20140522
  19. HYDROXYZINE [Concomitant]
     Active Substance: HYDROXYZINE HYDROCHLORIDE
  20. COZAAR [Concomitant]
     Active Substance: LOSARTAN POTASSIUM
  21. PREZCOBIX [Concomitant]
     Active Substance: COBICISTAT\DARUNAVIR ETHANOLATE
  22. RENVELA [Concomitant]
     Active Substance: SEVELAMER CARBONATE
  23. FAMOTIDINE. [Concomitant]
     Active Substance: FAMOTIDINE
  24. FUROSEMIDE. [Concomitant]
     Active Substance: FUROSEMIDE
  25. ATRIPLA [Suspect]
     Active Substance: EFAVIRENZ\EMTRICITABINE\TENOFOVIR DISOPROXIL FUMARATE
     Indication: HIV INFECTION
     Dosage: UNK
     Route: 065
     Dates: end: 2018
  26. RETROVIR [Concomitant]
     Active Substance: ZIDOVUDINE
  27. VIRACEPT [Concomitant]
     Active Substance: NELFINAVIR MESYLATE
  28. ONDANSETRON [Concomitant]
     Active Substance: ONDANSETRON
  29. ZIAGEN [Concomitant]
     Active Substance: ABACAVIR SULFATE
  30. CLARITIN [Concomitant]
     Active Substance: LORATADINE
  31. TRUVADA [Suspect]
     Active Substance: EMTRICITABINE\TENOFOVIR DISOPROXIL FUMARATE
     Dosage: UNK
     Route: 048
     Dates: start: 200906, end: 20140522
  32. ISENTRESS [Concomitant]
     Active Substance: RALTEGRAVIR POTASSIUM
  33. SUSTIVA [Concomitant]
     Active Substance: EFAVIRENZ
  34. VITAMIN D2 [Concomitant]
     Active Substance: ERGOCALCIFEROL
  35. SENSIPAR [Concomitant]
     Active Substance: CINACALCET HYDROCHLORIDE
  36. EPZICOM [Concomitant]
     Active Substance: ABACAVIR SULFATE\LAMIVUDINE
  37. VIRAMUNE [Concomitant]
     Active Substance: NEVIRAPINE
  38. ZERIT [Concomitant]
     Active Substance: STAVUDINE
  39. AZITHROMYCIN ANHYDROUS. [Concomitant]
     Active Substance: AZITHROMYCIN ANHYDROUS
  40. TIVICAY [Concomitant]
     Active Substance: DOLUTEGRAVIR SODIUM
  41. METRONIDAZOLE. [Concomitant]
     Active Substance: METRONIDAZOLE

REACTIONS (13)
  - Renal disorder [Unknown]
  - End stage renal disease [Not Recovered/Not Resolved]
  - Economic problem [Not Recovered/Not Resolved]
  - Loss of personal independence in daily activities [Not Recovered/Not Resolved]
  - Bone density decreased [Unknown]
  - Emotional distress [Recovered/Resolved]
  - Pain [Recovered/Resolved]
  - Renal failure [Unknown]
  - Quality of life decreased [Not Recovered/Not Resolved]
  - Anxiety [Not Recovered/Not Resolved]
  - Renal failure [Not Recovered/Not Resolved]
  - Decreased activity [Not Recovered/Not Resolved]
  - Anhedonia [Not Recovered/Not Resolved]

NARRATIVE: CASE EVENT DATE: 200912
